FAERS Safety Report 19291958 (Version 4)
Quarter: 2021Q2

REPORT INFORMATION
  Report Type: Report from Study
  Country: None (occurrence: CA)
  Receive Date: 20210524
  Receipt Date: 20210626
  Transmission Date: 20210717
  Serious: Yes (Hospitalization, Other)
  Sender: FDA-Public Use
  Company Number: CA-ABBVIE-21K-028-3916116-00

PATIENT
  Sex: Male

DRUGS (1)
  1. HUMIRA [Suspect]
     Active Substance: ADALIMUMAB
     Indication: PSORIATIC ARTHROPATHY
     Route: 058
     Dates: start: 20150608, end: 202105

REACTIONS (27)
  - Respiratory distress [Unknown]
  - Pericardial effusion [Unknown]
  - Oedema peripheral [Unknown]
  - Dry skin [Unknown]
  - Pleural effusion [Unknown]
  - Cough [Unknown]
  - Sleep disorder [Unknown]
  - Musculoskeletal stiffness [Not Recovered/Not Resolved]
  - Serositis [Unknown]
  - Lung disorder [Unknown]
  - Dyspepsia [Not Recovered/Not Resolved]
  - Unevaluable event [Unknown]
  - Carpal tunnel syndrome [Unknown]
  - Osteoarthritis [Not Recovered/Not Resolved]
  - Pericarditis [Unknown]
  - Nausea [Unknown]
  - Joint noise [Not Recovered/Not Resolved]
  - Cardiac tamponade [Unknown]
  - Epicondylitis [Not Recovered/Not Resolved]
  - Musculoskeletal stiffness [Not Recovered/Not Resolved]
  - Pleurisy [Unknown]
  - Cardiac disorder [Unknown]
  - Diffuse large B-cell lymphoma [Not Recovered/Not Resolved]
  - Asthenia [Unknown]
  - Condition aggravated [Unknown]
  - Dyspnoea [Not Recovered/Not Resolved]
  - Dizziness exertional [Unknown]

NARRATIVE: CASE EVENT DATE: 2021
